FAERS Safety Report 17120917 (Version 1)
Quarter: 2019Q4

REPORT INFORMATION
  Report Type: Spontaneous
  Country: US (occurrence: US)
  Receive Date: 20191205
  Receipt Date: 20191205
  Transmission Date: 20200122
  Serious: Yes (Disabling)
  Sender: FDA-Public Use
  Company Number: None

PATIENT
  Age: 56 Year
  Sex: Female
  Weight: 79.65 kg

DRUGS (44)
  1. LEVOLYL [Concomitant]
  2. RIZITRAPTAN [Concomitant]
  3. CYPROHEPTADINE. [Concomitant]
     Active Substance: CYPROHEPTADINE
  4. ONDANSETRON [Concomitant]
     Active Substance: ONDANSETRON
  5. EPIPEN [Concomitant]
     Active Substance: EPINEPHRINE
  6. CALCIUM [Concomitant]
     Active Substance: CALCIUM
  7. IODINE. [Concomitant]
     Active Substance: IODINE
  8. MTEHOTREXATE [Concomitant]
  9. ALVESCO [Concomitant]
     Active Substance: CICLESONIDE
  10. LOTRIMIN [Concomitant]
     Active Substance: CLOTRIMAZOLE
  11. NIACINIMIDE [Concomitant]
  12. UNNELLE [Concomitant]
  13. LOW DOSE NALTRAXONE [Concomitant]
  14. DHA/EPA [Concomitant]
  15. CARNATINE [Concomitant]
  16. TUMMS [Concomitant]
  17. RITUXAN [Suspect]
     Active Substance: RITUXIMAB
     Indication: DERMATOMYOSITIS
     Route: 042
     Dates: start: 20190103, end: 20190123
  18. CPAP [Concomitant]
     Active Substance: DEVICE
  19. MEDROL [Concomitant]
     Active Substance: METHYLPREDNISOLONE
  20. VITAMIN B12 [Concomitant]
     Active Substance: CYANOCOBALAMIN
  21. VITAMIN D3 [Concomitant]
     Active Substance: CHOLECALCIFEROL
  22. IVIG [Concomitant]
     Active Substance: HUMAN IMMUNOGLOBULIN G
  23. TYLENOL [Concomitant]
     Active Substance: ACETAMINOPHEN
  24. LOSARTAN. [Concomitant]
     Active Substance: LOSARTAN
  25. MICONAZOLE. [Concomitant]
     Active Substance: MICONAZOLE
  26. VENTOLIN [Concomitant]
     Active Substance: ALBUTEROL SULFATE
  27. CREATINE [Concomitant]
     Active Substance: CREATINE
  28. SELENIUM [Concomitant]
     Active Substance: SELENIUM
  29. COLLOSTRUM [Concomitant]
  30. OXYGEN. [Concomitant]
     Active Substance: OXYGEN
  31. CLEOCIN [Concomitant]
     Active Substance: CLINDAMYCIN PHOSPHATE
  32. BENADRYL [Concomitant]
     Active Substance: DIPHENHYDRAMINE HYDROCHLORIDE
  33. MAGNESIUM CALCIUM [Concomitant]
     Active Substance: CALCIUM CARBONATE\MAGNESIUM CARBONATE
  34. ZINC. [Concomitant]
     Active Substance: ZINC
  35. FOLIC ACID. [Concomitant]
     Active Substance: FOLIC ACID
  36. NASOCORT [Concomitant]
     Active Substance: BUDESONIDE
  37. CBD [Concomitant]
     Active Substance: CANNABIDIOL
  38. PATENOL [Concomitant]
  39. ALA [Concomitant]
  40. PROLIA [Concomitant]
     Active Substance: DENOSUMAB
  41. ADVAIR HFA [Concomitant]
     Active Substance: FLUTICASONE PROPIONATE\SALMETEROL XINAFOATE
  42. TYLENOL [Concomitant]
     Active Substance: ACETAMINOPHEN
  43. GABAPENTIN. [Concomitant]
     Active Substance: GABAPENTIN
  44. PROBIOTICS [Concomitant]
     Active Substance: PROBIOTICS NOS

REACTIONS (3)
  - Colitis [None]
  - Condition aggravated [None]
  - Myositis [None]

NARRATIVE: CASE EVENT DATE: 20190220
